FAERS Safety Report 11186165 (Version 1)
Quarter: 2015Q2

REPORT INFORMATION
  Report Type: Report from Study
  Country: US (occurrence: US)
  Receive Date: 20150612
  Receipt Date: 20150612
  Transmission Date: 20150821
  Serious: Yes (Hospitalization, Other)
  Sender: FDA-Public Use
  Company Number: US-TAKEDA-2015MPI003784

PATIENT
  Age: 58 Year
  Sex: Male
  Weight: 79.37 kg

DRUGS (1)
  1. VELCADE [Suspect]
     Active Substance: BORTEZOMIB
     Indication: PLASMA CELL MYELOMA
     Dosage: 3.06 MG, MONTHLY
     Route: 048
     Dates: start: 20141223, end: 20150217

REACTIONS (3)
  - Respiratory disorder [Unknown]
  - Acute myocardial infarction [Recovered/Resolved]
  - Dyspnoea [Unknown]

NARRATIVE: CASE EVENT DATE: 20150403
